FAERS Safety Report 8610935-1 (Version None)
Quarter: 2012Q3

REPORT INFORMATION
  Report Type: 
  Country: None (occurrence: None)
  Receive Date: 20120822
  Receipt Date: 20120814
  Transmission Date: 20120928
  Serious: Yes (Hospitalization, Other)
  Sender: FDA-Public Use
  Company Number: PHHY2012BR062619

PATIENT
  Sex: Female

DRUGS (7)
  1. NEBIVOLOL HCL [Concomitant]
     Indication: HYPERTENSION
     Dosage: 1 DF, DAILY
     Route: 048
  2. ATENOLOL [Concomitant]
     Indication: HYPERTENSION
     Dosage: 1 DF, DAILY
     Route: 048
  3. PROPRANOLOL [Concomitant]
     Dosage: 1 DF, PRN (WHEN HER HEART WAS GREATLY ACCELERATED)
  4. AMLODOPINE BESYLATE AND VALSARTAN [Suspect]
     Indication: HYPERTENSION
     Dosage: 1 DF (VALS 320 MG, AMLO 05 MG), UNK
  5. VENLAFAXINE HYDROCHOLRIDE [Concomitant]
     Indication: DEPRESSION
     Dosage: 1 DF, DAILY
     Route: 048
  6. AMLODOPINE BESYLATE AND VALSARTAN [Suspect]
     Dosage: 1 DF (VALS 320 MG, AMLO 10 MG), DAILY
     Route: 048
  7. SUSTRATE [Concomitant]
     Indication: VASOCONSTRICTION
     Dosage: 1 OR 2 DF, DAILY

REACTIONS (10)
  - CARDIAC DISORDER [None]
  - DIABETES MELLITUS [None]
  - GASTROINTESTINAL INFECTION [None]
  - BLOOD PRESSURE INCREASED [None]
  - HEART VALVE INCOMPETENCE [None]
  - BRONCHIAL OBSTRUCTION [None]
  - HEPATIC STEATOSIS [None]
  - BLOOD TRIGLYCERIDES INCREASED [None]
  - DYSPNOEA [None]
  - ARRHYTHMIA [None]
